FAERS Safety Report 8221709-8 (Version None)
Quarter: 2012Q1

REPORT INFORMATION
  Report Type: 
  Country: None (occurrence: None)
  Receive Date: 20120320
  Receipt Date: 20120316
  Transmission Date: 20120608
  Serious: No
  Sender: FDA-Public Use
  Company Number: US-PFIZER INC-2012037183

PATIENT
  Sex: Male
  Weight: 24.9 kg

DRUGS (1)
  1. IBUPROFEN (ADVIL) [Suspect]
     Indication: PYREXIA
     Dosage: UNK, 2X/DAY
     Route: 048
     Dates: start: 20120202, end: 20120203

REACTIONS (3)
  - CHILLS [None]
  - LIP DISCOLOURATION [None]
  - COORDINATION ABNORMAL [None]
